FAERS Safety Report 8765981 (Version 3)
Quarter: 2013Q1

REPORT INFORMATION
  Report Type: Report from Study
  Country: JP (occurrence: JP)
  Receive Date: 20120904
  Receipt Date: 20130326
  Transmission Date: 20140127
  Serious: Yes (Other)
  Sender: FDA-Public Use
  Company Number: JP-009507513-1207JPN001476

PATIENT
  Age: 55 Year
  Sex: Female
  Weight: 63 kg

DRUGS (7)
  1. PEGINTRON [Suspect]
     Indication: CHRONIC HEPATITIS C
     Dosage: 1.5 MCG/KG/WEEK
     Route: 058
     Dates: start: 20120514, end: 20121030
  2. REBETOL [Suspect]
     Indication: CHRONIC HEPATITIS C
     Dosage: 600 MG, QD
     Route: 048
     Dates: start: 20120514, end: 20121030
  3. TELAPREVIR [Suspect]
     Indication: CHRONIC HEPATITIS C
     Dosage: 1500 MG, QD
     Route: 048
     Dates: start: 20120514, end: 20120806
  4. POSTERISAN [Concomitant]
     Indication: ANORECTAL DISORDER
     Dosage: Q.S./DAY
     Route: 061
  5. MAGMITT [Concomitant]
     Indication: CONSTIPATION
     Dosage: 1980 MG, QD
     Route: 048
     Dates: start: 20120530
  6. VOLTAREN [Concomitant]
     Indication: PROPHYLAXIS
     Dosage: 25 MG, PRN
     Route: 054
  7. ANTEBATE [Concomitant]
     Indication: PARONYCHIA
     Dosage: Q.S
     Route: 061
     Dates: start: 20121002, end: 20121030

REACTIONS (1)
  - Anaemia [Recovered/Resolved]
